FAERS Safety Report 7945904-8 (Version None)
Quarter: 2011Q4

REPORT INFORMATION
  Report Type: 
  Country: None (occurrence: None)
  Receive Date: 20111125
  Receipt Date: 20111115
  Transmission Date: 20120403
  Serious: Yes (Death, Life-Threatening, Hospitalization, Disabling)
  Sender: FDA-Public Use
  Company Number: 2011MA016574

PATIENT
  Age: 49 Year
  Sex: Male

DRUGS (4)
  1. CYCLOPHOSPHAMIDE [Suspect]
     Indication: T-CELL PROLYMPHOCYTIC LEUKAEMIA
     Dosage: 200 MG/M**2 ; IV
     Route: 042
  2. FLUDARABINE PHOSPHATE [Suspect]
     Indication: T-CELL PROLYMPHOCYTIC LEUKAEMIA
     Dosage: 20 MG/M**2; IV
     Route: 042
  3. ALEMTUZUMAB (ALEMTUZUMAB) [Suspect]
     Indication: T-CELL PROLYMPHOCYTIC LEUKAEMIA
     Dosage: 30 MG; SC
     Route: 058
  4. MITOXANTRONE [Suspect]
     Indication: T-CELL PROLYMPHOCYTIC LEUKAEMIA
     Dosage: 6 MG/M**2; IV
     Route: 042

REACTIONS (4)
  - CSF PROTEIN INCREASED [None]
  - CAMPYLOBACTER TEST POSITIVE [None]
  - GUILLAIN-BARRE SYNDROME [None]
  - VIITH NERVE PARALYSIS [None]
